FAERS Safety Report 7351756-X (Version None)
Quarter: 2011Q1

REPORT INFORMATION
  Report Type: 
  Country: None (occurrence: None)
  Receive Date: 20110315
  Receipt Date: 20110304
  Transmission Date: 20110831
  Serious: No
  Sender: FDA-Public Use
  Company Number: US-JNJFOC-20110303291

PATIENT
  Sex: Female
  Weight: 61.24 kg

DRUGS (5)
  1. FENTANYL-100 [Suspect]
     Indication: BACK PAIN
     Route: 062
  2. NORCO [Concomitant]
     Indication: PAIN
     Dosage: 10/325 2.5 TABLETS PER DAY
     Route: 048
  3. NORCO [Concomitant]
     Route: 048
  4. LYRICA [Concomitant]
     Indication: ILL-DEFINED DISORDER
     Route: 048
  5. LYRICA [Concomitant]
     Route: 048

REACTIONS (9)
  - VOMITING [None]
  - FEELING ABNORMAL [None]
  - INAPPROPRIATE SCHEDULE OF DRUG ADMINISTRATION [None]
  - WITHDRAWAL SYNDROME [None]
  - MALAISE [None]
  - DIARRHOEA [None]
  - PALPITATIONS [None]
  - INSOMNIA [None]
  - DRUG DOSE OMISSION [None]
